FAERS Safety Report 18670305 (Version 1)
Quarter: 2020Q4

REPORT INFORMATION
  Report Type: Spontaneous
  Country: MX (occurrence: MX)
  Receive Date: 20201228
  Receipt Date: 20201228
  Transmission Date: 20210114
  Serious: Yes (Life-Threatening, Other)
  Sender: FDA-Public Use
  Company Number: MX-SA-2014SA085293

PATIENT

DRUGS (1)
  1. MYOZYME [Suspect]
     Active Substance: ALGLUCOSIDASE ALFA
     Indication: GLYCOGEN STORAGE DISEASE TYPE II
     Dosage: 30 MG/KG,QOW
     Route: 042
     Dates: start: 20130312, end: 20140606

REACTIONS (3)
  - Erythema multiforme [Recovered/Resolved]
  - Anaphylactic reaction [Unknown]
  - Bronchospasm [Recovered/Resolved]

NARRATIVE: CASE EVENT DATE: 20140604
